FAERS Safety Report 6647658-4 (Version None)
Quarter: 2010Q1

REPORT INFORMATION
  Report Type: 
  Country: None (occurrence: None)
  Receive Date: 20100323
  Receipt Date: 20100323
  Transmission Date: 20100710
  Serious: No
  Sender: FDA-Public Use
  Company Number: None

PATIENT
  Age: 33 Year
  Sex: Female
  Weight: 80.2867 kg

DRUGS (1)
  1. BUPROPION HCL [Suspect]
     Indication: DEPRESSION
     Dosage: 75MG ONCE A DAY PO
     Route: 048
     Dates: start: 20100119, end: 20100205

REACTIONS (4)
  - CRYING [None]
  - DRUG INEFFECTIVE [None]
  - HYPERSOMNIA [None]
  - PRODUCT SUBSTITUTION ISSUE [None]
